FAERS Safety Report 20330882 (Version 3)
Quarter: 2022Q1

REPORT INFORMATION
  Report Type: Report from Study
  Country: NL (occurrence: None)
  Receive Date: 20220113
  Receipt Date: 20220307
  Transmission Date: 20220423
  Serious: Yes (Hospitalization)
  Sender: FDA-Public Use
  Company Number: NL-ROCHE-2998155

PATIENT
  Age: 69 Year
  Sex: Female
  Weight: 83 kg

DRUGS (8)
  1. RITUXIMAB [Suspect]
     Active Substance: RITUXIMAB
     Indication: Follicular lymphoma
     Dosage: THE MOST RECENT CYCLE OF RITUXIMAB PRIOR TO EVENT ONSET, 750 MG IV INJECTION FOR INFUSION ONCE ON DA
     Route: 042
     Dates: start: 20190429, end: 20190526
  2. RITUXIMAB [Suspect]
     Active Substance: RITUXIMAB
     Route: 042
     Dates: start: 20210318, end: 20210512
  3. LENALIDOMIDE [Suspect]
     Active Substance: LENALIDOMIDE
     Indication: Follicular lymphoma
     Dosage: MOST RECENT CYCLE PRIOR TO EVENT ONSET, THE PATIENT RECEIVED CC-5013 15 MG ORAL CAPSULES DAILY FROM
     Route: 048
     Dates: start: 20190429, end: 20190519
  4. LENALIDOMIDE [Suspect]
     Active Substance: LENALIDOMIDE
     Route: 048
     Dates: start: 20190519, end: 20200408
  5. ACYCLOVIR [Concomitant]
     Active Substance: ACYCLOVIR
  6. PANTOPRAZOLE [Concomitant]
     Active Substance: PANTOPRAZOLE
  7. FERROUS GLYCINE SULFATE [Concomitant]
     Active Substance: FERROUS GLYCINE SULFATE
  8. SULFAMETHOXAZOLE;TRIMIPRAMINE [Concomitant]

REACTIONS (1)
  - COVID-19 [Recovered/Resolved]

NARRATIVE: CASE EVENT DATE: 20211024
